FAERS Safety Report 8989762 (Version 1)
Quarter: 2012Q4

REPORT INFORMATION
  Report Type: 
  Country: IT (occurrence: IT)
  Receive Date: 20121228
  Receipt Date: 20121228
  Transmission Date: 20130627
  Serious: Yes (Hospitalization)
  Sender: FDA-Public Use
  Company Number: IT-B.I. PHARMACEUTICALS,INC./RIDGEFIELD-2012-IT-00413IT

PATIENT
  Age: 86 Year
  Sex: Male

DRUGS (6)
  1. MIRAPEXIN [Suspect]
     Indication: PARKINSONISM
     Dates: start: 20121129, end: 20121129
  2. LORAZEPAM [Suspect]
     Indication: INSOMNIA
     Dosage: 1 mg
     Route: 048
     Dates: start: 20121129, end: 20121129
  3. CITALOPRAM [Suspect]
     Indication: PARKINSONISM
     Dosage: 20 mg
     Route: 048
     Dates: start: 20121129, end: 20121129
  4. VALIUM [Suspect]
     Indication: INSOMNIA
     Dosage: 5 mg
     Route: 048
     Dates: start: 20121129, end: 20121129
  5. CONGESCOR [Concomitant]
     Dosage: 5 mg
     Route: 048
     Dates: start: 20121129, end: 20121129
  6. NORVASC [Concomitant]
     Dosage: 10 mg
     Route: 048
     Dates: start: 20121129, end: 20121129

REACTIONS (2)
  - Asthenia [Not Recovered/Not Resolved]
  - Sopor [Not Recovered/Not Resolved]
